FAERS Safety Report 26074710 (Version 1)
Quarter: 2025Q4

REPORT INFORMATION
  Report Type: Spontaneous
  Country: CN (occurrence: CN)
  Receive Date: 20251121
  Receipt Date: 20251121
  Transmission Date: 20260118
  Serious: Yes (Hospitalization)
  Sender: MERCK SHARP & DOHME LLC
  Company Number: CN-009507513-2350125

PATIENT
  Age: 57 Year
  Sex: Female

DRUGS (3)
  1. KEYTRUDA [Suspect]
     Active Substance: PEMBROLIZUMAB
     Indication: Bile duct cancer
     Dosage: TIME INTERVAL: TOTAL: 1ST CYCLE
     Route: 041
     Dates: start: 20250821, end: 20250821
  2. NEDAPLATIN [Suspect]
     Active Substance: NEDAPLATIN
     Indication: Bile duct cancer
     Dosage: TIME INTERVAL: TOTAL: 1 ST CYCLE
     Route: 041
     Dates: start: 20250820, end: 20250822
  3. PACLITAXEL [Suspect]
     Active Substance: PACLITAXEL
     Indication: Bile duct cancer
     Dosage: TIME INTERVAL: TOTAL: 1ST CYCLE
     Route: 041
     Dates: start: 20250820, end: 20250822

REACTIONS (3)
  - Myelosuppression [Recovering/Resolving]
  - Lymphocyte count decreased [Recovering/Resolving]
  - Product use issue [Unknown]

NARRATIVE: CASE EVENT DATE: 20250820
